FAERS Safety Report 4649748-4 (Version None)
Quarter: 2005Q2

REPORT INFORMATION
  Report Type: 
  Country: None (occurrence: None)
  Receive Date: 20050502
  Receipt Date: 20050331
  Transmission Date: 20051028
  Serious: Yes (Hospitalization)
  Sender: FDA-Public Use
  Company Number: JP-BRISTOL-MYERS SQUIBB COMPANY-12915971

PATIENT
  Age: 69 Year
  Sex: Male

DRUGS (6)
  1. BRIPLATIN [Suspect]
     Indication: GASTRIC CANCER
     Route: 042
     Dates: start: 20040901, end: 20040901
  2. TS-1 [Suspect]
     Indication: GASTRIC CANCER
     Route: 048
     Dates: start: 20040425
  3. MYSLEE [Concomitant]
     Route: 048
     Dates: start: 20040825, end: 20040913
  4. ASPIRIN [Concomitant]
     Route: 048
     Dates: start: 20040825, end: 20040913
  5. HERBESSER [Concomitant]
     Route: 048
     Dates: start: 20040825, end: 20040913
  6. RENIVACE [Concomitant]
     Route: 048
     Dates: start: 20040825, end: 20040913

REACTIONS (4)
  - DIARRHOEA [None]
  - PYREXIA [None]
  - STOMATITIS [None]
  - WHITE BLOOD CELL COUNT DECREASED [None]
